FAERS Safety Report 9593380 (Version 1)
Quarter: 2013Q3

REPORT INFORMATION
  Report Type: Spontaneous
  Country: US (occurrence: None)
  Receive Date: 20130930
  Receipt Date: 20130930
  Transmission Date: 20140515
  Serious: No
  Sender: FDA-Public Use
  Company Number: 1000045917

PATIENT
  Age: 50 Year
  Sex: Female

DRUGS (4)
  1. LINZESS [Suspect]
  2. SYNTHROID (LEVOTHYROXINE SODIUM) (LEVOTHYROXINE SODIUM) [Concomitant]
  3. PRAVASTATIN (PRAVASTATIN) (PRAVASTATIN) [Concomitant]
  4. ZETIA (EXETIMIBE) (EZETIMIBE) [Concomitant]

REACTIONS (1)
  - Rash [None]
